FAERS Safety Report 4989341-7 (Version None)
Quarter: 2006Q2

REPORT INFORMATION
  Report Type: 
  Country: None (occurrence: None)
  Receive Date: 20060426
  Receipt Date: 20060418
  Transmission Date: 20061013
  Serious: Yes (Hospitalization, Other)
  Sender: FDA-Public Use
  Company Number: 001-0945-950345

PATIENT
  Sex: Male

DRUGS (12)
  1. NEURONTIN [Suspect]
     Indication: ILL-DEFINED DISORDER
     Dosage: ORAL
     Route: 048
     Dates: start: 19950101
  2. DILANTIN KAPSEAL [Suspect]
     Indication: EPILEPSY
     Dosage: ORAL
     Route: 048
  3. ZOLOFT [Suspect]
     Indication: ILL-DEFINED DISORDER
     Dosage: ORAL
     Route: 048
  4. LAMICTAL [Suspect]
     Indication: ILL-DEFINED DISORDER
  5. TOPAMAX [Suspect]
     Indication: ILL-DEFINED DISORDER
  6. ZANAFLEX [Suspect]
     Indication: ILL-DEFINED DISORDER
     Dosage: ORAL
     Route: 048
  7. CEFTIN [Concomitant]
  8. PROZAC [Concomitant]
  9. CELEXA [Concomitant]
  10. KEPPA (LEVETIRACETAM) [Concomitant]
  11. LACTULOSE [Concomitant]
  12. LORAZEPAM [Concomitant]

REACTIONS (18)
  - ASTHENIA [None]
  - CHEST DISCOMFORT [None]
  - CONVULSION [None]
  - DEAFNESS NEUROSENSORY [None]
  - DENTAL PLAQUE [None]
  - DIFFICULTY IN WALKING [None]
  - DIZZINESS [None]
  - DRUG LEVEL INCREASED [None]
  - DYSSTASIA [None]
  - MUSCLE SPASMS [None]
  - PARALYSIS [None]
  - ROAD TRAFFIC ACCIDENT [None]
  - SOMNOLENCE [None]
  - SPINAL DISORDER [None]
  - TINNITUS [None]
  - TOOTH DISCOLOURATION [None]
  - VICTIM OF CRIME [None]
  - VISUAL ACUITY REDUCED [None]
